FAERS Safety Report 9866911 (Version 1)
Quarter: 2014Q1

REPORT INFORMATION
  Report Type: Spontaneous
  Country: US (occurrence: None)
  Receive Date: 20140131
  Receipt Date: 20140131
  Transmission Date: 20141002
  Serious: Yes (Hospitalization)
  Sender: FDA-Public Use
  Company Number: 2014AP000826

PATIENT
  Age: 37 Year
  Sex: Female

DRUGS (9)
  1. QUETIAPINE FUMARATE [Suspect]
     Indication: SUICIDAL BEHAVIOUR
  2. PAROXETINE HCL TABLETS [Suspect]
     Dosage: THERAPY DATES 4 YEARS
  3. LAMOTRIGINE TABLETS [Suspect]
     Dosage: THERAPY DATES 4 YEARS
  4. FLUOXETINE HYDROCHLORIDE ORAL SOLUTION [Suspect]
  5. BETAMETHASONE [Suspect]
  6. CLONAZEPAM TABLETS, USP [Suspect]
  7. LORAZEPAM [Suspect]
  8. HALOPERIDOL [Suspect]
  9. GLYBURIDE [Suspect]
     Indication: GESTATIONAL DIABETES

REACTIONS (15)
  - Intentional overdose [None]
  - Loss of consciousness [None]
  - Anxiety [None]
  - Gestational diabetes [None]
  - Transaminases increased [None]
  - Pre-eclampsia [None]
  - Exposure during pregnancy [None]
  - Suicidal behaviour [None]
  - Condition aggravated [None]
  - Hypertension [None]
  - Caesarean section [None]
  - Depression [None]
  - Premature delivery [None]
  - Transverse presentation [None]
  - Refusal of treatment by patient [None]
